FAERS Safety Report 23504801 (Version 1)
Quarter: 2024Q1

REPORT INFORMATION
  Report Type: Spontaneous
  Country: GB (occurrence: GB)
  Receive Date: 20240209
  Receipt Date: 20240209
  Transmission Date: 20240410
  Serious: No
  Sender: FDA-Public Use
  Company Number: None

PATIENT
  Age: 65 Year
  Sex: Female
  Weight: 49 kg

DRUGS (9)
  1. CEPHALEXIN [Suspect]
     Active Substance: CEPHALEXIN
     Indication: Ill-defined disorder
     Dosage: UNK
     Route: 065
     Dates: start: 20221223
  2. AMITRIPTYLINE HYDROCHLORIDE [Concomitant]
     Active Substance: AMITRIPTYLINE HYDROCHLORIDE
     Indication: Ill-defined disorder
     Dosage: UNK (2 NOCTE)
     Route: 065
     Dates: start: 20210727
  3. CEPHALEXIN [Concomitant]
     Active Substance: CEPHALEXIN
     Indication: Ill-defined disorder
     Dosage: UNK, TID (TAKE ONE CAPSULE THREE TIMES A DAY)
     Route: 065
     Dates: start: 20221221
  4. LEVOTHYROXINE [Concomitant]
     Active Substance: LEVOTHYROXINE\LEVOTHYROXINE SODIUM
     Indication: Ill-defined disorder
     Dosage: UNK, OD (TAKE ONE EACH MORNING)
     Route: 065
     Dates: start: 20221130
  5. FEXOFENADINE [Concomitant]
     Active Substance: FEXOFENADINE HYDROCHLORIDE
     Indication: Ill-defined disorder
     Dosage: UNK, OD (TAKE ONE TABLET ONCE A DAY BEFORE FOOD FOR ITCH)
     Route: 065
     Dates: start: 20221206
  6. LEVOTHYROXINE [Concomitant]
     Active Substance: LEVOTHYROXINE\LEVOTHYROXINE SODIUM
     Indication: Ill-defined disorder
     Dosage: UNK, OD (TAKE ONE TABLET ONCE A DAY EACH MORNING)
     Route: 065
     Dates: start: 20220704, end: 20221130
  7. NITROFURANTOIN [Concomitant]
     Active Substance: NITROFURANTOIN
     Indication: Ill-defined disorder
     Dosage: UNK, BID (TAKE ONE TWICE DAILY )
     Route: 065
     Dates: start: 20221208, end: 20221215
  8. PREDNISOLONE [Concomitant]
     Active Substance: PREDNISOLONE
     Indication: Ill-defined disorder
     Dosage: UNK (USE 1-2 TIMES/DAY DURING FLARE ONLY AND FOR A M)
     Route: 065
     Dates: start: 20220704
  9. VAGIFEM [Concomitant]
     Active Substance: ESTRADIOL
     Indication: Ill-defined disorder
     Dosage: UNK (TWICE WEEKLY)
     Route: 065
     Dates: start: 20220704

REACTIONS (1)
  - Dizziness [Unknown]

NARRATIVE: CASE EVENT DATE: 20221223
